FAERS Safety Report 9776981 (Version 4)
Quarter: 2014Q4

REPORT INFORMATION
  Report Type: Report from Study
  Country: FR (occurrence: FR)
  Receive Date: 20131221
  Receipt Date: 20141218
  Transmission Date: 20150529
  Serious: Yes (Hospitalization)
  Sender: FDA-Public Use
  Company Number: FR-ROCHE-1164295

PATIENT
  Age: 60 Year
  Sex: Female

DRUGS (9)
  1. COAPROVEL [Concomitant]
     Active Substance: HYDROCHLOROTHIAZIDE\IRBESARTAN
     Route: 065
  2. TOPALGIC LP [Concomitant]
     Active Substance: TRAMADOL
     Route: 065
  3. ACTONEL [Concomitant]
     Active Substance: RISEDRONATE SODIUM
     Route: 065
  4. PARACETAMOL [Concomitant]
     Active Substance: ACETAMINOPHEN
  5. RITUXIMAB [Suspect]
     Active Substance: RITUXIMAB
     Indication: RHEUMATOID ARTHRITIS
     Route: 042
     Dates: start: 20090305
  6. ROACTEMRA [Concomitant]
     Active Substance: TOCILIZUMAB
  7. CORTANCYL [Concomitant]
     Active Substance: PREDNISONE
     Route: 065
  8. METHOTREXATE [Concomitant]
     Active Substance: METHOTREXATE
     Route: 065
  9. AMPICILLIN [Concomitant]
     Active Substance: AMPICILLIN

REACTIONS (10)
  - Ankle arthroplasty [Recovered/Resolved]
  - Pyelonephritis [Recovered/Resolved]
  - Diabetes mellitus inadequate control [Recovered/Resolved]
  - Lumbar vertebral fracture [Recovered/Resolved]
  - Erysipelas [Recovered/Resolved]
  - Diabetes mellitus [Recovered/Resolved]
  - Pyelonephritis acute [Recovered/Resolved]
  - Liver disorder [Unknown]
  - Infusion related reaction [Recovered/Resolved]
  - Escherichia sepsis [Recovered/Resolved]

NARRATIVE: CASE EVENT DATE: 20090305
